FAERS Safety Report 10175105 (Version 2)
Quarter: 2014Q2

REPORT INFORMATION
  Report Type: Spontaneous
  Country: US (occurrence: US)
  Receive Date: 20140515
  Receipt Date: 20140616
  Transmission Date: 20141212
  Serious: No
  Sender: FDA-Public Use
  Company Number: US-009507513-1405USA007476

PATIENT
  Age: 67 Year
  Sex: Female

DRUGS (6)
  1. CLARITIN-D-12 [Suspect]
     Indication: HYPERSENSITIVITY
     Dosage: 5 MG, Q12H
     Route: 048
     Dates: start: 20140503, end: 20140507
  2. CLARITIN-D-12 [Suspect]
     Indication: LACRIMATION INCREASED
  3. CLARITIN-D-12 [Suspect]
     Indication: EYE PRURITUS
  4. CLARITIN-D-12 [Suspect]
     Indication: RESPIRATORY TRACT CONGESTION
  5. LASIX (FUROSEMIDE SODIUM) [Concomitant]
     Indication: FLUID RETENTION
     Dosage: UNK, UNKNOWN
  6. POTASSIUM (UNSPECIFIED) [Concomitant]
     Indication: PRODUCT USED FOR UNKNOWN INDICATION
     Dosage: UNK, UNKNOWN

REACTIONS (1)
  - Drug ineffective [Unknown]
